FAERS Safety Report 9070211 (Version 1)
Quarter: 2013Q1

REPORT INFORMATION
  Report Type: Report from Study
  Country: US (occurrence: US)
  Receive Date: 20130129
  Receipt Date: 20130129
  Transmission Date: 20140127
  Serious: No
  Sender: FDA-Public Use
  Company Number: US-ABBOTT-12P-163-0925098-00

PATIENT
  Age: 13 Year
  Sex: Male

DRUGS (3)
  1. HUMIRA 20 MG/0.4 ML PRE-FILLED SYRINGE [Suspect]
     Indication: CROHN^S DISEASE
  2. PREDNISONE [Concomitant]
     Indication: PRODUCT USED FOR UNKNOWN INDICATION
     Dosage: 20 MG DAILY (TAPERING TO 10 MG 12-APR-2012)
     Route: 048
  3. SINGULAIR (OVER THE COUNTER) [Concomitant]
     Indication: HYPERSENSITIVITY
     Dosage: DAILY
     Route: 048

REACTIONS (1)
  - Coeliac disease [Not Recovered/Not Resolved]
